FAERS Safety Report 8773187 (Version 4)
Quarter: 2013Q2

REPORT INFORMATION
  Report Type: Report from Study
  Country: FR (occurrence: FR)
  Receive Date: 20120907
  Receipt Date: 20130611
  Transmission Date: 20140414
  Serious: Yes (Other)
  Sender: FDA-Public Use
  Company Number: FR-NOVOPROD-358880

PATIENT
  Age: 73 Year
  Sex: Male
  Weight: 80 kg

DRUGS (2)
  1. IDEG PDS290 [Suspect]
     Indication: TYPE 2 DIABETES MELLITUS
     Dosage: 47 U,QD
     Route: 058
     Dates: start: 20111017, end: 20120429
  2. NOVORAPID FLEXPEN [Suspect]
     Indication: TYPE 2 DIABETES MELLITUS
     Dosage: 5 U,QD
     Route: 058
     Dates: start: 20111017, end: 20120429

REACTIONS (1)
  - Prostate cancer [Recovered/Resolved]
